FAERS Safety Report 8194419-3 (Version None)
Quarter: 2012Q1

REPORT INFORMATION
  Report Type: 
  Country: None (occurrence: None)
  Receive Date: 20120308
  Receipt Date: 20120305
  Transmission Date: 20120608
  Serious: Yes (Other)
  Sender: FDA-Public Use
  Company Number: US-PFIZER INC-2012058915

PATIENT
  Sex: Female
  Weight: 104.31 kg

DRUGS (9)
  1. CARVEDILOL [Concomitant]
     Indication: HYPERTENSION
     Dosage: 12.5 MG, 2X/DAY
  2. METFORMIN [Concomitant]
     Indication: DIABETES MELLITUS
     Dosage: UNK
  3. LYRICA [Suspect]
     Indication: BURNING SENSATION
     Dosage: 25 MG, 1X/DAY
     Route: 048
  4. NIFEDIPINE [Concomitant]
     Indication: HYPERTENSION
     Dosage: 30 MG, 2X/DAY
  5. PLAVIX [Concomitant]
     Dosage: UNK
  6. LYRICA [Suspect]
  7. LANTUS [Concomitant]
     Indication: DIABETES MELLITUS
     Dosage: UNK
  8. HUMALOG [Concomitant]
     Indication: DIABETES MELLITUS
     Dosage: UNK
  9. LOSARTAN [Concomitant]
     Indication: HYPERTENSION
     Dosage: UNK, 2X/DAY

REACTIONS (7)
  - BLOOD CHOLESTEROL INCREASED [None]
  - DIZZINESS [None]
  - INTRAOCULAR PRESSURE INCREASED [None]
  - BALANCE DISORDER [None]
  - CEREBROVASCULAR ACCIDENT [None]
  - DYSGRAPHIA [None]
  - MUSCLE SPASMS [None]
